FAERS Safety Report 18149858 (Version 1)
Quarter: 2020Q3

REPORT INFORMATION
  Report Type: Spontaneous
  Country: US (occurrence: US)
  Receive Date: 20200813
  Receipt Date: 20200813
  Transmission Date: 20201103
  Serious: No
  Sender: FDA-Public Use
  Company Number: None

PATIENT
  Sex: Female

DRUGS (1)
  1. TACROLIMUS 1MG STRIDES PHARMA [Suspect]
     Active Substance: TACROLIMUS
     Indication: ILLNESS
     Route: 048
     Dates: start: 202007

REACTIONS (3)
  - Dizziness [None]
  - Disturbance in attention [None]
  - Blood pressure decreased [None]
